FAERS Safety Report 7833237-X (Version None)
Quarter: 2011Q4

REPORT INFORMATION
  Report Type: 
  Country: None (occurrence: None)
  Receive Date: 20111024
  Receipt Date: 20111018
  Transmission Date: 20120403
  Serious: Yes (Other)
  Sender: FDA-Public Use
  Company Number: US-PFIZER INC-2011250932

PATIENT
  Sex: Female

DRUGS (2)
  1. PREMARIN [Suspect]
     Dosage: UNK
     Route: 067
  2. BENADRYL [Suspect]
     Indication: DYSPNOEA
     Dosage: UNK

REACTIONS (2)
  - FATIGUE [None]
  - DYSPNOEA [None]
